FAERS Safety Report 16876149 (Version 1)
Quarter: 2019Q4

REPORT INFORMATION
  Report Type: Spontaneous
  Country: US (occurrence: US)
  Receive Date: 20191002
  Receipt Date: 20191002
  Transmission Date: 20200122
  Serious: No
  Sender: FDA-Public Use
  Company Number: US-GW PHARMA-201907USGW2693

PATIENT

DRUGS (8)
  1. DIACOMIT [Concomitant]
     Active Substance: STIRIPENTOL
     Indication: PRODUCT USED FOR UNKNOWN INDICATION
     Dosage: 1 PACKET IN 100MLS OF WATER, BID
     Route: 048
     Dates: start: 20190517
  2. GLYCOPYRROLATE [GLYCOPYRRONIUM BROMIDE] [Concomitant]
     Active Substance: GLYCOPYRROLATE
     Indication: PRODUCT USED FOR UNKNOWN INDICATION
     Dosage: 1 TABLET, BID
     Route: 048
     Dates: start: 20181210
  3. MIDAZOLAM [Concomitant]
     Active Substance: MIDAZOLAM HYDROCHLORIDE
     Indication: SEIZURE CLUSTER
  4. PHENYTOIN. [Concomitant]
     Active Substance: PHENYTOIN
     Indication: PRODUCT USED FOR UNKNOWN INDICATION
     Dosage: CHEW 1 TABLET, TID
     Route: 048
     Dates: start: 20190509
  5. DIACOMIT [Concomitant]
     Active Substance: STIRIPENTOL
     Indication: PRODUCT USED FOR UNKNOWN INDICATION
     Dosage: 2 PACKETS IN 100MLS OF WATER, BID
     Route: 048
     Dates: start: 20190517
  6. EPIDIOLEX [Suspect]
     Active Substance: CANNABIDIOL
     Indication: EPILEPSY
     Dosage: 200 MILLIGRAM, BID
     Route: 048
     Dates: start: 20190703
  7. ONFI [Concomitant]
     Active Substance: CLOBAZAM
     Indication: PRODUCT USED FOR UNKNOWN INDICATION
     Dosage: 8 MILLILITER, QD (2ML AM, 2ML IN THE AFTERNOON AND 4ML AT BEDTIME)
     Route: 048
     Dates: start: 20190509
  8. MIDAZOLAM [Concomitant]
     Active Substance: MIDAZOLAM HYDROCHLORIDE
     Indication: SEIZURE
     Dosage: 1 MILLILITER INTO EACH NOSTRIL, PRN FOR SEIZURES MORE THAN 5 MIN LOG OR A SEIZURE CLUSTER
     Route: 045
     Dates: start: 20170817

REACTIONS (2)
  - Enuresis [Unknown]
  - Somnolence [Unknown]

NARRATIVE: CASE EVENT DATE: 20190708
